FAERS Safety Report 6124553-0 (Version None)
Quarter: 2009Q1

REPORT INFORMATION
  Report Type: 
  Country: None (occurrence: None)
  Receive Date: 20090319
  Receipt Date: 20090310
  Transmission Date: 20090719
  Serious: Yes (Death, Hospitalization, Other)
  Sender: FDA-Public Use
  Company Number: US-MERCK-0807USA01648

PATIENT
  Age: 83 Year
  Sex: Female

DRUGS (2)
  1. FOSAMAX [Suspect]
     Indication: OSTEOPOROSIS
     Route: 048
     Dates: start: 20050920, end: 20061111
  2. ENALAPRIL MALEATE [Concomitant]
     Indication: HYPERTENSION
     Route: 065
     Dates: start: 19990101

REACTIONS (15)
  - ABSCESS LIMB [None]
  - CARDIAC FAILURE CONGESTIVE [None]
  - CELLULITIS [None]
  - CONSTIPATION [None]
  - DEAFNESS NEUROSENSORY [None]
  - EAR INFECTION [None]
  - EAR PAIN [None]
  - HYPOAESTHESIA ORAL [None]
  - INGROWING NAIL [None]
  - MASTOIDITIS [None]
  - MIDDLE EAR EFFUSION [None]
  - PAIN IN JAW [None]
  - RESTRICTIVE PULMONARY DISEASE [None]
  - TEMPOROMANDIBULAR JOINT SYNDROME [None]
  - TRISMUS [None]
